FAERS Safety Report 21614289 (Version 1)
Quarter: 2022Q4

REPORT INFORMATION
  Report Type: Spontaneous
  Country: US (occurrence: US)
  Receive Date: 20221118
  Receipt Date: 20221118
  Transmission Date: 20230113
  Serious: Yes (Hospitalization)
  Sender: FDA-Public Use
  Company Number: US-LUPIN PHARMACEUTICALS INC.-2022-13576

PATIENT
  Age: 45 Year
  Sex: Male

DRUGS (19)
  1. RIFAMPIN [Interacting]
     Active Substance: RIFAMPIN
     Indication: Extrapulmonary tuberculosis
     Dosage: 600 MILLIGRAM, QD (AT ADMISSION) (FULL DOSE)
     Route: 065
  2. RIFAMPIN [Interacting]
     Active Substance: RIFAMPIN
     Indication: Pulmonary tuberculosis
     Dosage: 450 MILLIGRAM, QD (DECREASED)
     Route: 065
     Dates: start: 20201229
  3. RIFAMPIN [Interacting]
     Active Substance: RIFAMPIN
     Indication: Lymph node tuberculosis
     Dosage: 450 MILLIGRAM, QD
     Route: 065
     Dates: start: 20210102
  4. RIFAMPIN [Interacting]
     Active Substance: RIFAMPIN
     Dosage: 450 MILLIGRAM, QD
     Route: 065
     Dates: start: 20210104
  5. TACROLIMUS [Interacting]
     Active Substance: TACROLIMUS
     Indication: Immunosuppressant drug therapy
     Dosage: 10 MILLIGRAM, QD (AT ADMISSION)
     Route: 065
  6. TACROLIMUS [Interacting]
     Active Substance: TACROLIMUS
     Dosage: 20 MILLIGRAM, QD (INCREASED)
     Route: 065
     Dates: start: 20201229
  7. TACROLIMUS [Interacting]
     Active Substance: TACROLIMUS
     Dosage: 24 MILLIGRAM, QD (INCREASED)
     Route: 065
     Dates: start: 20210102
  8. TACROLIMUS [Interacting]
     Active Substance: TACROLIMUS
     Dosage: 28 MILLIGRAM, QD (INCREASED) (AT DISCHARGE)
     Route: 065
     Dates: start: 20210104
  9. MYCOPHENOLATE MOFETIL [Concomitant]
     Active Substance: MYCOPHENOLATE MOFETIL
     Indication: Immunosuppression
     Dosage: UNK
     Route: 065
  10. PREDNISONE [Concomitant]
     Active Substance: PREDNISONE
     Indication: Immunosuppressant drug therapy
     Dosage: UNK
     Route: 065
  11. ISONIAZID [Concomitant]
     Active Substance: ISONIAZID
     Indication: Pulmonary tuberculosis
     Dosage: UNK (FULL DOSE)
     Route: 065
  12. ISONIAZID [Concomitant]
     Active Substance: ISONIAZID
     Indication: Extrapulmonary tuberculosis
  13. ISONIAZID [Concomitant]
     Active Substance: ISONIAZID
     Indication: Lymph node tuberculosis
  14. PYRAZINAMIDE [Concomitant]
     Active Substance: PYRAZINAMIDE
     Indication: Pulmonary tuberculosis
     Dosage: UNK (FULL DOSE)
     Route: 065
  15. PYRAZINAMIDE [Concomitant]
     Active Substance: PYRAZINAMIDE
     Indication: Extrapulmonary tuberculosis
  16. PYRAZINAMIDE [Concomitant]
     Active Substance: PYRAZINAMIDE
     Indication: Lymph node tuberculosis
  17. ETHAMBUTOL [Concomitant]
     Active Substance: ETHAMBUTOL HYDROCHLORIDE
     Indication: Pulmonary tuberculosis
     Dosage: UNK (FULL DOSE)
     Route: 065
  18. ETHAMBUTOL [Concomitant]
     Active Substance: ETHAMBUTOL HYDROCHLORIDE
     Indication: Extrapulmonary tuberculosis
  19. ETHAMBUTOL [Concomitant]
     Active Substance: ETHAMBUTOL HYDROCHLORIDE
     Indication: Lymph node tuberculosis

REACTIONS (2)
  - Immunosuppressant drug level decreased [Recovered/Resolved]
  - Drug interaction [Recovered/Resolved]

NARRATIVE: CASE EVENT DATE: 20201229
